FAERS Safety Report 6852754-2 (Version None)
Quarter: 2010Q3

REPORT INFORMATION
  Report Type: 
  Country: None (occurrence: None)
  Receive Date: 20100717
  Receipt Date: 20080118
  Transmission Date: 20110219
  Serious: No
  Sender: FDA-Public Use
  Company Number: US-PFIZER INC-2007098946

PATIENT
  Sex: Female
  Weight: 83.01 kg

DRUGS (3)
  1. CHANTIX [Suspect]
     Indication: SMOKING CESSATION THERAPY
     Route: 048
     Dates: start: 20071113
  2. LASIX [Concomitant]
  3. ALLEGRA [Concomitant]
     Indication: HYPERSENSITIVITY

REACTIONS (9)
  - AGITATION [None]
  - ANXIETY [None]
  - CARDIAC DISORDER [None]
  - HEADACHE [None]
  - INCREASED APPETITE [None]
  - NERVOUSNESS [None]
  - NOCTURIA [None]
  - RENAL PAIN [None]
  - TREMOR [None]
